FAERS Safety Report 5420369-9 (Version None)
Quarter: 2007Q3

REPORT INFORMATION
  Report Type: 
  Country: None (occurrence: None)
  Receive Date: 20070816
  Receipt Date: 20070803
  Transmission Date: 20080115
  Serious: Yes (Other)
  Sender: FDA-Public Use
  Company Number: 17176

PATIENT
  Age: 17 Year
  Sex: Male

DRUGS (6)
  1. LEUCOVORIN CALCIUM [Suspect]
     Indication: NASOPHARYNGEAL CANCER
     Dosage: 25 MG/M2 PER_CYCLE
  2. METHOTREXATE [Suspect]
     Indication: NASOPHARYNGEAL CANCER
     Dosage: 120 MG/M2 PER_CYCLE
  3. CISPLATIN [Suspect]
     Indication: NASOPHARYNGEAL CANCER
     Dosage: 100 MG/M2 PER_CYCLE
  4. FLUOROURACIL [Suspect]
     Indication: NASOPHARYNGEAL CANCER
     Dosage: 1000 MG/M2 PER_CYCLE
  5. INTENSITY-MODULATED RADIOTHERAPY [Suspect]
     Indication: NASOPHARYNGEAL CANCER
  6. EBV-CYTOTOXIC T-LYMPHOCYTES [Concomitant]

REACTIONS (6)
  - DENTAL CARIES [None]
  - DRUG TOXICITY [None]
  - DRY MOUTH [None]
  - FIBROSIS [None]
  - OSTEONECROSIS [None]
  - TEMPOROMANDIBULAR JOINT SYNDROME [None]
